FAERS Safety Report 24305886 (Version 1)
Quarter: 2024Q3

REPORT INFORMATION
  Report Type: Report from Study
  Country: US (occurrence: US)
  Receive Date: 20240911
  Receipt Date: 20240911
  Transmission Date: 20241016
  Serious: Yes (Other)
  Sender: RANBAXY
  Company Number: US-SUN PHARMACEUTICAL INDUSTRIES LTD-2024R1-467053

PATIENT
  Age: 36 Year
  Sex: Female

DRUGS (5)
  1. CLINDAMYCIN [Suspect]
     Active Substance: CLINDAMYCIN
     Indication: Hidradenitis
     Dosage: UNK
     Route: 061
  2. GLYCOPYRROLATE [Suspect]
     Active Substance: GLYCOPYRROLATE
     Indication: Hidradenitis
     Dosage: 0.5 MILLIGRAM
     Route: 065
  3. SPIRONOLACTONE [Suspect]
     Active Substance: SPIRONOLACTONE
     Indication: Hidradenitis
     Dosage: 100 MILLIGRAM, QD
     Route: 065
  4. AMOXICILLIN\CLAVULANATE POTASSIUM [Suspect]
     Active Substance: AMOXICILLIN\CLAVULANATE POTASSIUM
     Indication: Hidradenitis
     Dosage: UNK
     Route: 065
  5. DAPSONE [Suspect]
     Active Substance: DAPSONE
     Indication: Hidradenitis
     Dosage: 50-100 MG/DAY
     Route: 048

REACTIONS (1)
  - Therapy partial responder [Unknown]
